FAERS Safety Report 9603499 (Version 2)
Quarter: 2013Q4

REPORT INFORMATION
  Report Type: Spontaneous
  Country: US (occurrence: US)
  Receive Date: 20131007
  Receipt Date: 20131217
  Transmission Date: 20140711
  Serious: Yes (Other)
  Sender: FDA-Public Use
  Company Number: PHEH2013US020757

PATIENT
  Sex: Female

DRUGS (19)
  1. TOBI [Suspect]
     Dosage: UNK UKN, BID
     Route: 055
     Dates: start: 20130822
  2. ALBUTEROL [Concomitant]
     Dosage: UNK UKN, UNK
  3. BROVANA [Concomitant]
     Dosage: UNK UKN, UNK
  4. BUDESONIDE [Concomitant]
     Dosage: UNK UKN, UNK
  5. SPIRIVA [Concomitant]
     Dosage: UNK UKN, UNK
  6. HYDROCHLOROTHIAZIDE [Concomitant]
     Dosage: UNK UKN, UNK
  7. AMLODIPINE [Concomitant]
     Dosage: UNK UKN, UNK
  8. MONTELUKAST [Concomitant]
     Dosage: UNK UKN, UNK
  9. SIMVASTATIN [Concomitant]
     Dosage: UNK UKN, UNK
  10. BABY ASPIRIN [Concomitant]
     Dosage: UNK UKN, UNK
  11. PREDNISONE [Concomitant]
     Dosage: UNK UKN, UNK
  12. LORATADINE [Concomitant]
     Dosage: UNK UKN, UNK
  13. CALCIUM [Concomitant]
     Dosage: UNK UKN, UNK
  14. POTASSIUM [Concomitant]
     Dosage: UNK UKN, UNK
  15. VITAMIN D [Concomitant]
     Dosage: UNK UKN, UNK
  16. PROBIOTICS [Concomitant]
     Dosage: UNK UKN, UNK
  17. OMEPRAZOLE [Concomitant]
     Dosage: UNK UKN, UNK
  18. HIZENTRA [Concomitant]
     Dosage: 1 DF, QW
     Route: 041
  19. BONIVA [Concomitant]
     Dosage: UNK UKN, EVERY 3 MONTHS

REACTIONS (6)
  - Chronic obstructive pulmonary disease [Unknown]
  - Bronchiectasis [Unknown]
  - Infective exacerbation of bronchiectasis [Unknown]
  - Asthma [Unknown]
  - Dyspnoea [Unknown]
  - Cough [Recovered/Resolved]
